FAERS Safety Report 5370939-1 (Version None)
Quarter: 2007Q2

REPORT INFORMATION
  Report Type: 
  Country: None (occurrence: None)
  Receive Date: 20070626
  Receipt Date: 20070614
  Transmission Date: 20071010
  Serious: Yes (Hospitalization)
  Sender: FDA-Public Use
  Company Number: BR-PFIZER INC-2007021498

PATIENT
  Sex: Female

DRUGS (11)
  1. SILDENAFIL (PAH) [Suspect]
     Indication: PULMONARY HYPERTENSION
     Route: 048
     Dates: start: 20060901, end: 20070101
  2. SILDENAFIL (PAH) [Suspect]
  3. TOPIRAMATE [Concomitant]
     Route: 048
  4. FLUOXETINE [Concomitant]
     Route: 048
  5. RISPERIDONE [Concomitant]
     Route: 048
  6. CHLORDIAZEPOXIDE [Concomitant]
     Route: 048
  7. OYSTER SHELL CALCIUM [Concomitant]
     Route: 048
  8. ALL OTHER THERAPEUTIC PRODUCTS [Concomitant]
     Route: 048
  9. GEODON [Concomitant]
     Route: 048
  10. ALLEGRA [Concomitant]
     Route: 048
  11. ALENDRONATE SODIUM [Concomitant]
     Route: 048

REACTIONS (5)
  - DYSPNOEA [None]
  - FATIGUE [None]
  - OBESITY SURGERY [None]
  - THERAPEUTIC RESPONSE DECREASED [None]
  - WEIGHT INCREASED [None]
